FAERS Safety Report 6610867-4 (Version None)
Quarter: 2010Q1

REPORT INFORMATION
  Report Type: 
  Country: None (occurrence: None)
  Receive Date: 20100302
  Receipt Date: 20100225
  Transmission Date: 20100710
  Serious: Yes (Disabling, Other)
  Sender: FDA-Public Use
  Company Number: US-MERCK-0912USA00011

PATIENT
  Age: 54 Year
  Sex: Female

DRUGS (2)
  1. FOSAMAX [Suspect]
     Indication: OSTEOPOROSIS
     Route: 048
     Dates: start: 20050101, end: 20060701
  2. FOSAMAX [Suspect]
     Indication: NEOPLASM MALIGNANT
     Route: 048
     Dates: start: 20050101, end: 20060701

REACTIONS (4)
  - LUNG ADENOCARCINOMA METASTATIC [None]
  - METASTASES TO BONE [None]
  - OSTEONECROSIS [None]
  - TOOTH DISORDER [None]
